FAERS Safety Report 8963691 (Version 2)
Quarter: 2012Q4

REPORT INFORMATION
  Report Type: 
  Country: GB (occurrence: PL)
  Receive Date: 20121214
  Receipt Date: 20121221
  Transmission Date: 20130627
  Serious: Yes (Other)
  Sender: FDA-Public Use
  Company Number: PL-AMGEN-POLNI2012080220

PATIENT
  Age: 58 Year
  Sex: Female

DRUGS (4)
  1. FILGRASTIM [Suspect]
     Indication: BREAST CANCER
     Dosage: UNK
     Dates: start: 200905
  2. TRASTUZUMAB [Concomitant]
     Indication: BREAST CANCER
     Dosage: 6 mg/kg, q3wk
     Route: 065
  3. NAVELBINE [Concomitant]
     Indication: BREAST CANCER
     Dosage: UNK UNK, qwk
     Route: 065
  4. TAMOXIFEN [Concomitant]

REACTIONS (6)
  - Epilepsy [Not Recovered/Not Resolved]
  - Metastases to central nervous system [Not Recovered/Not Resolved]
  - Leukopenia [Not Recovered/Not Resolved]
  - Chills [Not Recovered/Not Resolved]
  - General physical health deterioration [Not Recovered/Not Resolved]
  - Pyrexia [Not Recovered/Not Resolved]
